FAERS Safety Report 22642131 (Version 4)
Quarter: 2024Q3

REPORT INFORMATION
  Report Type: Report from Study
  Country: US (occurrence: US)
  Receive Date: 20230626
  Receipt Date: 20240930
  Transmission Date: 20241016
  Serious: No
  Sender: ABBVIE
  Company Number: US-ABBVIE-5303699

PATIENT
  Sex: Female

DRUGS (1)
  1. VENCLEXTA [Suspect]
     Active Substance: VENETOCLAX
     Indication: Chronic lymphocytic leukaemia
     Dosage: FORM STRENGTH: 100 MILLIGRAM, FREQUENCY TEXT: 4 TABLET(S) BY MOUTH ONCE DAILY
     Route: 048

REACTIONS (2)
  - Tympanic membrane perforation [Unknown]
  - Hypoacusis [Unknown]
